FAERS Safety Report 4379080-8 (Version None)
Quarter: 2004Q2

REPORT INFORMATION
  Report Type: 
  Country: None (occurrence: None)
  Receive Date: 20040610
  Receipt Date: 20040531
  Transmission Date: 20050107
  Serious: Yes (Death)
  Sender: FDA-Public Use
  Company Number: 04P-087-0262664-00

PATIENT
  Age: 82 Year
  Sex: Male

DRUGS (7)
  1. WARFARIN SODIUM [Suspect]
     Dosage: PER ORAL
     Route: 048
  2. BLOPRESS TABLETS (CANDESARTAN CILEXETIL) (CANDESARTAN CILEXETIL) (CAND [Suspect]
     Indication: HYPERTENSION
     Dosage: 4 MG, 1 IN 1 D, PER ORAL
     Route: 048
     Dates: start: 20030807, end: 20031126
  3. ASPIRIN [Suspect]
     Dosage: PER ORAL
     Route: 048
  4. BISOPROLOL FUMARATE [Suspect]
     Dosage: PER ORAL
     Route: 048
  5. TICLOPIDINE HCL [Suspect]
     Dosage: PER ORAL
     Route: 048
  6. FAMOTIDINE [Suspect]
     Dosage: PER ORAL
     Route: 048
  7. CIPRALAN [Suspect]

REACTIONS (2)
  - HYPERTENSION [None]
  - INTERSTITIAL LUNG DISEASE [None]
